FAERS Safety Report 6102519-4 (Version None)
Quarter: 2009Q1

REPORT INFORMATION
  Report Type: 
  Country: None (occurrence: None)
  Receive Date: 20090304
  Receipt Date: 20081205
  Transmission Date: 20090719
  Serious: No
  Sender: FDA-Public Use
  Company Number: A0738637A

PATIENT
  Age: 50 Year
  Sex: Male

DRUGS (6)
  1. REQUIP [Suspect]
     Indication: RESTLESS LEGS SYNDROME
     Dosage: .25MG SINGLE DOSE
     Route: 048
     Dates: start: 20080718, end: 20080719
  2. COPAXONE [Concomitant]
  3. TOPROL-XL [Concomitant]
  4. LOTREL [Concomitant]
  5. REGLAN [Concomitant]
  6. AMBIEN [Concomitant]

REACTIONS (1)
  - INSOMNIA [None]
